FAERS Safety Report 10741252 (Version 1)
Quarter: 2015Q1

REPORT INFORMATION
  Report Type: Spontaneous
  Country: CN (occurrence: CN)
  Receive Date: 20150127
  Receipt Date: 20150127
  Transmission Date: 20150721
  Serious: Yes (Hospitalization)
  Sender: FDA-Public Use
  Company Number: CN-BAYER-2015-007702

PATIENT
  Age: 75 Year
  Sex: Female

DRUGS (1)
  1. BAYASPIRIN [Suspect]
     Active Substance: ASPIRIN
     Dosage: 1 DF, QD
     Dates: start: 201412

REACTIONS (13)
  - Faeces discoloured [None]
  - Gastrointestinal tract irritation [None]
  - Decreased appetite [None]
  - Abdominal pain [None]
  - Palpitations [None]
  - Tinnitus [None]
  - Abdominal discomfort [None]
  - Occult blood positive [None]
  - Poisoning [None]
  - Specific gravity urine [None]
  - Chromaturia [None]
  - Haematuria [None]
  - Anorectal discomfort [None]
